FAERS Safety Report 17673854 (Version 2)
Quarter: 2020Q4

REPORT INFORMATION
  Report Type: Spontaneous
  Country: US (occurrence: US)
  Receive Date: 20200416
  Receipt Date: 20201126
  Transmission Date: 20210113
  Serious: No
  Sender: FDA-Public Use
  Company Number: US-BIOGEN-2020BI00863192

PATIENT
  Sex: Female

DRUGS (1)
  1. TYSABRI [Suspect]
     Active Substance: NATALIZUMAB
     Indication: MULTIPLE SCLEROSIS
     Route: 065
     Dates: start: 20110503, end: 20120702

REACTIONS (3)
  - Dental caries [Recovered/Resolved with Sequelae]
  - Tooth loss [Recovered/Resolved]
  - Food allergy [Not Recovered/Not Resolved]
